FAERS Safety Report 11873667 (Version 1)
Quarter: 2015Q4

REPORT INFORMATION
  Report Type: Spontaneous
  Country: FR (occurrence: FR)
  Receive Date: 20151228
  Receipt Date: 20151228
  Transmission Date: 20160305
  Serious: Yes (Hospitalization, Disabling, Other)
  Sender: FDA-Public Use
  Company Number: FR-HOSPIRA-3114531

PATIENT
  Age: 62 Year
  Sex: Female
  Weight: 50 kg

DRUGS (6)
  1. GEMCITABINE HYDROCHLORIDE. [Suspect]
     Active Substance: GEMCITABINE HYDROCHLORIDE
     Indication: DISEASE PROGRESSION
     Route: 042
     Dates: start: 20150512, end: 20150512
  2. RUXOLITINIB [Suspect]
     Active Substance: RUXOLITINIB
     Indication: ADENOCARCINOMA PANCREAS
     Route: 048
     Dates: start: 20150210, end: 20150506
  3. CAPECITABINE. [Suspect]
     Active Substance: CAPECITABINE
     Indication: ADENOCARCINOMA PANCREAS
     Dosage: DURING 15 DAYS OF 21 DAYS
     Route: 048
     Dates: start: 20150210, end: 20150427
  4. RUXOLITINIB [Suspect]
     Active Substance: RUXOLITINIB
     Indication: ADENOCARCINOMA PANCREAS
     Dosage: DURING 15 DAYS OF 21 DAYS
     Route: 048
     Dates: start: 20150210, end: 20150427
  5. CAPECITABINE. [Suspect]
     Active Substance: CAPECITABINE
     Indication: ADENOCARCINOMA PANCREAS
     Route: 048
     Dates: start: 20150210, end: 20150506
  6. GEMCITABINE HYDROCHLORIDE. [Suspect]
     Active Substance: GEMCITABINE HYDROCHLORIDE
     Indication: DISEASE PROGRESSION
     Route: 042
     Dates: start: 20150518, end: 20150518

REACTIONS (12)
  - General physical health deterioration [Unknown]
  - Vomiting [Unknown]
  - Diarrhoea [Unknown]
  - Sepsis [Recovered/Resolved]
  - Abdominal pain upper [Unknown]
  - Pneumonia aspiration [Recovered/Resolved]
  - Karnofsky scale worsened [Unknown]
  - Nausea [Unknown]
  - Decreased appetite [Unknown]
  - Weight decreased [Unknown]
  - Respiratory distress [Unknown]
  - Asthenia [Unknown]

NARRATIVE: CASE EVENT DATE: 20150519
